FAERS Safety Report 4431422-0 (Version None)
Quarter: 2004Q3

REPORT INFORMATION
  Report Type: 
  Country: None (occurrence: None)
  Receive Date: 20040824
  Receipt Date: 20040820
  Transmission Date: 20050211
  Serious: Yes (Other)
  Sender: FDA-Public Use
  Company Number: US-GLAXOSMITHKLINE-A0522931A

PATIENT
  Age: 35 Year
  Sex: Male

DRUGS (3)
  1. WELLBUTRIN [Suspect]
     Dosage: 150MG TWICE PER DAY
     Route: 048
     Dates: start: 20040801, end: 20040817
  2. LUDIOMIL [Concomitant]
  3. UNKNOWN MEDICATION [Concomitant]

REACTIONS (4)
  - BLOOD GLUCOSE INCREASED [None]
  - CONVULSION [None]
  - FALL [None]
  - UPPER LIMB FRACTURE [None]
